FAERS Safety Report 4502412-4 (Version None)
Quarter: 2004Q4

REPORT INFORMATION
  Report Type: 
  Country: None (occurrence: None)
  Receive Date: 20041110
  Receipt Date: 20041104
  Transmission Date: 20050328
  Serious: Yes (Death, Life-Threatening)
  Sender: FDA-Public Use
  Company Number: 2004EU001941

PATIENT
  Age: 40 Year
  Sex: Female

DRUGS (2)
  1. PROGRAFT (TACROLIMUS) CAPSULE [Suspect]
     Indication: RENAL TRANSPLANT
     Dosage: D, ORAL
     Route: 048
     Dates: start: 20040810, end: 20040913
  2. IMURAN [Suspect]
     Indication: RENAL TRANSPLANT
     Dosage: D, ORAL
     Route: 048
     Dates: start: 20040810, end: 20040913

REACTIONS (4)
  - BONE MARROW DEPRESSION [None]
  - DRUG LEVEL INCREASED [None]
  - PANCYTOPENIA [None]
  - PNEUMONIA PRIMARY ATYPICAL [None]
